FAERS Safety Report 21440022 (Version 1)
Quarter: 2022Q4

REPORT INFORMATION
  Report Type: Spontaneous
  Country: DE (occurrence: DE)
  Receive Date: 20221011
  Receipt Date: 20221011
  Transmission Date: 20230112
  Serious: Yes (Hospitalization)
  Sender: FDA-Public Use
  Company Number: DE-ADRED-07815-01

PATIENT
  Age: 78 Year
  Sex: Male

DRUGS (7)
  1. IBUPROFEN [Suspect]
     Active Substance: IBUPROFEN
     Indication: Product used for unknown indication
     Dosage: 600 MG, 1-0-1-0
  2. RIVAROXABAN [Concomitant]
     Active Substance: RIVAROXABAN
     Indication: Product used for unknown indication
     Dosage: 15 MG, 0-0-1-0
  3. EMPAGLIFLOZIN [Concomitant]
     Active Substance: EMPAGLIFLOZIN
     Indication: Product used for unknown indication
     Dosage: 10 MG, 1-0-0-0
  4. BISOPROLOL [Concomitant]
     Active Substance: BISOPROLOL
     Indication: Product used for unknown indication
     Dosage: 5 MG, 1-0-0-0
  5. DIGITOXIN [Concomitant]
     Active Substance: DIGITOXIN
     Indication: Product used for unknown indication
     Dosage: 0.07 MG, 1-0-0-0
  6. PANTOPRAZOLE [Concomitant]
     Active Substance: PANTOPRAZOLE
     Indication: Product used for unknown indication
     Dosage: 40 MG, 1-0-0-0
  7. INSULIN LISPRO [Concomitant]
     Active Substance: INSULIN LISPRO
     Indication: Product used for unknown indication
     Dosage: 26-0-16-0

REACTIONS (11)
  - Acute respiratory failure [Unknown]
  - Systemic infection [Unknown]
  - Hyperglycaemia [Unknown]
  - Arrhythmia [Unknown]
  - General physical health deterioration [Unknown]
  - Atrial fibrillation [Unknown]
  - Electrocardiogram abnormal [Unknown]
  - Acute myocardial infarction [Unknown]
  - Renal impairment [Unknown]
  - Tachycardia [Unknown]
  - Dyspnoea [Unknown]
